FAERS Safety Report 8400192-3 (Version None)
Quarter: 2012Q2

REPORT INFORMATION
  Report Type: 
  Country: None (occurrence: None)
  Receive Date: 20120531
  Receipt Date: 20120523
  Transmission Date: 20120825
  Serious: Yes (Hospitalization)
  Sender: FDA-Public Use
  Company Number: GB-ABBOTT-12P-167-0913245-00

PATIENT
  Sex: Male

DRUGS (5)
  1. METHOTREXATE [Concomitant]
     Indication: ARTHRITIS
  2. EMLA [Concomitant]
     Indication: PRODUCT USED FOR UNKNOWN INDICATION
  3. PREDNISOLONE [Concomitant]
     Indication: ARTHRITIS
  4. SULFASALAZINE [Concomitant]
     Indication: ARTHRITIS
  5. HUMIRA [Suspect]
     Indication: JUVENILE ARTHRITIS
     Dosage: EVERY 2/52
     Route: 058
     Dates: start: 20060101, end: 20120201

REACTIONS (9)
  - LETHARGY [None]
  - INJECTION SITE PAIN [None]
  - OEDEMA PERIPHERAL [None]
  - OSTEOMYELITIS [None]
  - PAIN IN EXTREMITY [None]
  - BONE CYST [None]
  - ARTHRALGIA [None]
  - ABSCESS [None]
  - JOINT EFFUSION [None]
